APPROVED DRUG PRODUCT: UCERIS
Active Ingredient: BUDESONIDE
Strength: 9MG
Dosage Form/Route: TABLET, EXTENDED RELEASE;ORAL
Application: N203634 | Product #001 | TE Code: AB
Applicant: SALIX PHARMACEUTICALS INC
Approved: Jan 14, 2013 | RLD: Yes | RS: Yes | Type: RX

PATENTS:
Patent 8895064 | Expires: Sep 7, 2031
Patent 10660858 | Expires: Sep 7, 2031
Patent 10307375 | Expires: Sep 7, 2031
Patent 9132093 | Expires: Sep 7, 2031
Patent 9192581 | Expires: Sep 7, 2031